FAERS Safety Report 11087579 (Version 1)
Quarter: 2015Q2

REPORT INFORMATION
  Report Type: Spontaneous
  Country: NO (occurrence: NO)
  Receive Date: 20150504
  Receipt Date: 20150504
  Transmission Date: 20150821
  Serious: Yes (Hospitalization)
  Sender: FDA-Public Use
  Company Number: NO-ACTAVIS-2015-08940

PATIENT
  Age: 53 Year
  Sex: Female

DRUGS (8)
  1. PACLITAXEL ACTAVIS [Suspect]
     Active Substance: PACLITAXEL
     Indication: ADJUVANT THERAPY
     Dosage: UNK UNK, CYCLICAL. 4 TREATMENTS
     Route: 042
     Dates: start: 20140623, end: 20140826
  2. CARBOPLATIN KABI [Suspect]
     Active Substance: CARBOPLATIN
     Indication: PRODUCT USED FOR UNKNOWN INDICATION
     Dosage: UNK UNK, CYCLICAL. 4 TREATMENTS
     Route: 042
     Dates: start: 20140623, end: 20140628
  3. PREDNISOLON                        /00016201/ [Concomitant]
     Active Substance: PREDNISOLONE
     Indication: TRANSPLANT REJECTION
     Dosage: 5 MG, DAILY
     Route: 048
  4. MYFENAX                            /00372303/ [Concomitant]
     Indication: TRANSPLANT REJECTION
     Dosage: 750 MG, BID
     Route: 048
  5. LESCOL [Concomitant]
     Active Substance: FLUVASTATIN SODIUM
     Indication: HYPERCHOLESTEROLAEMIA
     Dosage: 80 MG, DAILY
     Route: 048
  6. PROGRAF [Concomitant]
     Active Substance: TACROLIMUS\TACROLIMUS ANHYDROUS
     Indication: TRANSPLANT REJECTION
     Dosage: 1.5 MG, BID
     Route: 048
  7. IMOVANE [Concomitant]
     Active Substance: ZOPICLONE
     Indication: INSOMNIA
     Dosage: 7.5 MG, PRN. QPM
     Route: 048
  8. TRAMADOL ACTAVIS [Concomitant]
     Active Substance: TRAMADOL
     Indication: PAIN
     Dosage: 30MG, PRN. AS NEEDED UP TO 3 TIMES A DAY
     Route: 048

REACTIONS (1)
  - Impaired gastric emptying [Recovering/Resolving]

NARRATIVE: CASE EVENT DATE: 201408
